FAERS Safety Report 9174041 (Version 1)
Quarter: 2013Q1

REPORT INFORMATION
  Report Type: Spontaneous
  Country: NL (occurrence: None)
  Receive Date: 20130315
  Receipt Date: 20130315
  Transmission Date: 20140127
  Serious: Yes (Other)
  Sender: FDA-Public Use
  Company Number: SYM-2013-01287

PATIENT
  Age: 49 Year
  Sex: Female
  Weight: 95 kg

DRUGS (1)
  1. ENALAPRIL MALEATE (ENALAPRIL MALEATE) (TABLETS) (ENALAPRIL MALEATE) [Suspect]
     Indication: HYPERTENSION
     Route: 048
     Dates: start: 20120706, end: 20130131

REACTIONS (2)
  - Facial paresis [None]
  - Face oedema [None]
